FAERS Safety Report 5030673-4 (Version None)
Quarter: 2006Q2

REPORT INFORMATION
  Report Type: 
  Country: None (occurrence: None)
  Receive Date: 20060615
  Receipt Date: 20060604
  Transmission Date: 20061013
  Serious: Yes (Death)
  Sender: FDA-Public Use
  Company Number: 2006065185

PATIENT
  Age: 58 Year
  Sex: Male

DRUGS (7)
  1. INSPRA [Suspect]
     Indication: CARDIAC FAILURE CONGESTIVE
     Dosage: (25 MG)
     Dates: start: 20030818, end: 20060514
  2. INSULIN [Concomitant]
  3. DIGOXIN [Concomitant]
  4. SIMOVIL (SIMVASTATIN) [Concomitant]
  5. DIMITONE (CARVEDILOL) [Concomitant]
  6. FUROSEMIDE [Concomitant]
  7. MICROPIRIN (ACETYLSALICYLIC ACID) [Concomitant]

REACTIONS (11)
  - ACUTE MYOCARDIAL INFARCTION [None]
  - ANURIA [None]
  - CARDIOGENIC SHOCK [None]
  - CORONARY ARTERY STENOSIS [None]
  - FACIAL PALSY [None]
  - HEMIPARESIS [None]
  - HEMIPLEGIA [None]
  - HYPOTENSION [None]
  - LOSS OF CONSCIOUSNESS [None]
  - PULMONARY OEDEMA [None]
  - VENTRICULAR DYSFUNCTION [None]
